FAERS Safety Report 9912833 (Version 1)
Quarter: 2014Q1

REPORT INFORMATION
  Report Type: Spontaneous
  Country: JP (occurrence: None)
  Receive Date: 20140214
  Receipt Date: 20140214
  Transmission Date: 20141002
  Serious: Yes (Hospitalization)
  Sender: FDA-Public Use
  Company Number: DSJ-2014-02646

PATIENT
  Age: 49 Year
  Sex: Male
  Weight: 96 kg

DRUGS (3)
  1. OLMETEC (OLMESARTAN MEDOXOMIL) (TABLET) (OLMESARTAN MEDOXOMIL) [Suspect]
     Indication: HYPERTENSION
     Route: 048
     Dates: start: 20140101, end: 20140115
  2. PLAVIX (CLOPIDOGREL) [Concomitant]
  3. AMLODIN OD (AMLODIPINE BESILATE) [Concomitant]

REACTIONS (1)
  - Renal disorder [None]
